FAERS Safety Report 8525275-9 (Version None)
Quarter: 2012Q3

REPORT INFORMATION
  Report Type: 
  Country: None (occurrence: None)
  Receive Date: 20120720
  Receipt Date: 20120717
  Transmission Date: 20120928
  Serious: Yes (Hospitalization, Other)
  Sender: FDA-Public Use
  Company Number: PHEH2007US08935

PATIENT
  Sex: Female

DRUGS (25)
  1. AREDIA [Suspect]
     Indication: MULTIPLE MYELOMA
     Dosage: 90 MG, QMO
     Route: 042
  2. MEVACOR [Concomitant]
     Indication: BLOOD CHOLESTEROL
  3. COD-LIVER OIL [Concomitant]
  4. MULTIVITE [Concomitant]
  5. ACYCLOVIR [Concomitant]
  6. CAMPATH [Suspect]
     Dates: end: 20040927
  7. THALIDOMIDE [Suspect]
  8. NEURONTIN [Concomitant]
  9. PERIDEX [Concomitant]
     Dosage: 10 CM3, BID
  10. SCOPOLAMINE [Concomitant]
  11. DARVOCET-N 50 [Concomitant]
  12. TYLENOL [Concomitant]
  13. MAGNESIUM SULFATE [Concomitant]
  14. PREDNISONE TAB [Concomitant]
     Dosage: UNK UKN, QD
     Route: 048
  15. ASPIRIN [Concomitant]
  16. HYDRALAZINE HCL [Concomitant]
  17. CALCIUM [Concomitant]
  18. LOVASTATIN [Concomitant]
  19. ATIVAN [Concomitant]
  20. CHEMOTHERAPEUTICS NOS [Concomitant]
     Indication: NEOPLASM MALIGNANT
  21. PROCRIT                            /00909301/ [Concomitant]
  22. MS CONTIN [Concomitant]
  23. SOLU-MEDROL [Concomitant]
     Dosage: UNK UKN, QD
  24. AUGMENTIN '125' [Concomitant]
  25. REVLIMID [Concomitant]

REACTIONS (72)
  - SWELLING [None]
  - EMOTIONAL DISTRESS [None]
  - PAIN IN JAW [None]
  - ABDOMINAL PAIN [None]
  - BREAST PAIN [None]
  - RASH [None]
  - STOMATITIS [None]
  - BONE MARROW FAILURE [None]
  - INFECTION [None]
  - IMPAIRED HEALING [None]
  - HYPOPHAGIA [None]
  - PELVIC PAIN [None]
  - DYSPEPSIA [None]
  - ATELECTASIS [None]
  - URTICARIA [None]
  - SEPSIS [None]
  - OSTEONECROSIS OF JAW [None]
  - DEFORMITY [None]
  - DISCOMFORT [None]
  - RIB FRACTURE [None]
  - NAUSEA [None]
  - SUPRAVENTRICULAR TACHYCARDIA [None]
  - SPLENIC GRANULOMA [None]
  - OSTEOSCLEROSIS [None]
  - ACTINOMYCOSIS [None]
  - NEUROPATHY PERIPHERAL [None]
  - PAIN [None]
  - CHOLELITHIASIS [None]
  - DEPRESSION [None]
  - PNEUMONIA [None]
  - FACIAL PAIN [None]
  - PLEURAL EFFUSION [None]
  - ESCHERICHIA URINARY TRACT INFECTION [None]
  - FACE OEDEMA [None]
  - THROMBOCYTOPENIA [None]
  - PANCYTOPENIA [None]
  - BUNDLE BRANCH BLOCK LEFT [None]
  - HYPOCALCAEMIA [None]
  - ANXIETY [None]
  - ANAEMIA [None]
  - CONFUSIONAL STATE [None]
  - CELLULITIS [None]
  - SINUSITIS [None]
  - BLOOD PRESSURE INCREASED [None]
  - UPPER LIMB FRACTURE [None]
  - BRONCHITIS [None]
  - FALL [None]
  - CLAVICLE FRACTURE [None]
  - ABSCESS [None]
  - MUCOSAL INFLAMMATION [None]
  - PHLEBOLITH [None]
  - HYPOTENSION [None]
  - BONE DISORDER [None]
  - DECREASED INTEREST [None]
  - SKIN REACTION [None]
  - TENDONITIS [None]
  - VULVAL ULCERATION [None]
  - ABDOMINAL PAIN LOWER [None]
  - INSOMNIA [None]
  - VENOUS LAKE [None]
  - PULMONARY FIBROSIS [None]
  - VULVOVAGINAL DRYNESS [None]
  - EPISTAXIS [None]
  - OSTEOMYELITIS [None]
  - HALLUCINATION [None]
  - HYPERTROPHY [None]
  - OSTEOLYSIS [None]
  - ESSENTIAL HYPERTENSION [None]
  - ANGIOEDEMA [None]
  - DERMATITIS ATOPIC [None]
  - UPPER RESPIRATORY TRACT INFECTION [None]
  - CHEST PAIN [None]
